FAERS Safety Report 7931521-2 (Version None)
Quarter: 2011Q4

REPORT INFORMATION
  Report Type: 
  Country: None (occurrence: None)
  Receive Date: 20111121
  Receipt Date: 20111121
  Transmission Date: 20120403
  Serious: Yes (Disabling)
  Sender: FDA-Public Use
  Company Number: None

PATIENT
  Age: 62 Year
  Sex: Female
  Weight: 58.967 kg

DRUGS (1)
  1. BISOPROLOL FUMARATE [Suspect]
     Indication: BLOOD PRESSURE INCREASED
     Dates: start: 20111018, end: 20111115

REACTIONS (4)
  - DRUG INEFFECTIVE [None]
  - PRODUCT SUBSTITUTION ISSUE [None]
  - INSOMNIA [None]
  - HYPERTENSION [None]
